FAERS Safety Report 10913887 (Version 1)
Quarter: 2015Q1

REPORT INFORMATION
  Report Type: Spontaneous
  Country: US (occurrence: US)
  Receive Date: 20150313
  Receipt Date: 20150313
  Transmission Date: 20150721
  Serious: Yes (Other)
  Sender: FDA-Public Use
  Company Number: US-ELI_LILLY_AND_COMPANY-US201503000505

PATIENT
  Sex: Male

DRUGS (3)
  1. CYMBALTA [Suspect]
     Active Substance: DULOXETINE HYDROCHLORIDE
     Indication: PAIN
  2. CYMBALTA [Suspect]
     Active Substance: DULOXETINE HYDROCHLORIDE
     Indication: DEPRESSION
  3. CYMBALTA [Suspect]
     Active Substance: DULOXETINE HYDROCHLORIDE
     Indication: ANXIETY
     Dosage: UNK, UNKNOWN
     Route: 065
     Dates: start: 2007, end: 201303

REACTIONS (10)
  - Seizure [Unknown]
  - Drug withdrawal syndrome [Unknown]
  - Disorientation [Unknown]
  - Restless legs syndrome [Unknown]
  - Tremor [Unknown]
  - Pain [Unknown]
  - Vertigo [Unknown]
  - Excessive eye blinking [Unknown]
  - Paraesthesia [Unknown]
  - Suicidal ideation [Unknown]
